FAERS Safety Report 7712046-6 (Version None)
Quarter: 2011Q3

REPORT INFORMATION
  Report Type: 
  Country: None (occurrence: None)
  Receive Date: 20110826
  Receipt Date: 20110822
  Transmission Date: 20111222
  Serious: Yes (Congenital Anomaly, Other)
  Sender: FDA-Public Use
  Company Number: US-PFIZER INC-2011195047

PATIENT
  Sex: Male
  Weight: 3.3 kg

DRUGS (2)
  1. SERTRALINE HYDROCHLORIDE [Suspect]
     Dosage: 100 MG, UNK
     Route: 064
     Dates: start: 20061103
  2. ZOLOFT [Suspect]
     Dosage: 100 MG, UNK
     Route: 064
     Dates: start: 20061207

REACTIONS (2)
  - CLEFT LIP AND PALATE [None]
  - MATERNAL EXPOSURE DURING PREGNANCY [None]
